FAERS Safety Report 24694870 (Version 1)
Quarter: 2024Q4

REPORT INFORMATION
  Report Type: Spontaneous
  Country: US (occurrence: None)
  Receive Date: 20241203
  Receipt Date: 20241203
  Transmission Date: 20250114
  Serious: No
  Sender: Public
  Company Number: None

PATIENT
  Age: 81 Year
  Sex: Female

DRUGS (7)
  1. JAKAFI [Suspect]
     Active Substance: RUXOLITINIB
     Dosage: 10 MG/MG TWICE  DAY BUCCAL?
     Route: 002
     Dates: start: 20240702
  2. METOPROLOL [Concomitant]
     Active Substance: METOPROLOL
  3. MOMETASONE [Concomitant]
     Active Substance: MOMETASONE
  4. ESTRADIOL [Concomitant]
     Active Substance: ESTRADIOL
  5. CLOPIDOGREL [Concomitant]
     Active Substance: CLOPIDOGREL BISULFATE
  6. LEVOTHYROXINE [Concomitant]
     Active Substance: LEVOTHYROXINE
  7. vision health [Concomitant]

REACTIONS (1)
  - Weight increased [None]

NARRATIVE: CASE EVENT DATE: 20241203
